FAERS Safety Report 15434902 (Version 1)
Quarter: 2018Q3

REPORT INFORMATION
  Report Type: Spontaneous
  Country: US (occurrence: US)
  Receive Date: 20180923
  Receipt Date: 20180923
  Transmission Date: 20181010
  Serious: Yes (Other)
  Sender: FDA-Public Use
  Company Number: None

PATIENT
  Age: 67 Year
  Sex: Male
  Weight: 72 kg

DRUGS (7)
  1. BRIMONIDINE TARTRATE. [Suspect]
     Active Substance: BRIMONIDINE TARTRATE
     Indication: GLAUCOMA
     Dosage: ?          QUANTITY:1 GTT DROP(S);?
     Route: 047
     Dates: start: 20180921, end: 20180922
  2. LOSARTAN. [Concomitant]
     Active Substance: LOSARTAN
  3. BABY ASPIRIN [Concomitant]
     Active Substance: ASPIRIN
  4. ATENOLOL. [Concomitant]
     Active Substance: ATENOLOL
  5. DILTIAZEM EXTENDED RELEASE [Concomitant]
     Active Substance: DILTIAZEM
  6. FINASTERIDE. [Concomitant]
     Active Substance: FINASTERIDE
  7. TAMSULOSIN [Concomitant]
     Active Substance: TAMSULOSIN

REACTIONS (7)
  - Blindness transient [None]
  - Instillation site pain [None]
  - Lacrimation increased [None]
  - Vision blurred [None]
  - Foreign body sensation in eyes [None]
  - Instillation site discomfort [None]
  - Visual acuity reduced [None]

NARRATIVE: CASE EVENT DATE: 20180921
